FAERS Safety Report 5926106-3 (Version None)
Quarter: 2008Q4

REPORT INFORMATION
  Report Type: 
  Country: None (occurrence: None)
  Receive Date: 20081016
  Receipt Date: 20081001
  Transmission Date: 20090506
  Serious: Yes (Other)
  Sender: FDA-Public Use
  Company Number: 20351

PATIENT
  Age: 38 Year
  Sex: Female

DRUGS (1)
  1. CYTARABINE [Suspect]

REACTIONS (1)
  - ERYTHEMA MULTIFORME [None]
